FAERS Safety Report 7233364-4 (Version None)
Quarter: 2011Q1

REPORT INFORMATION
  Report Type: 
  Country: None (occurrence: None)
  Receive Date: 20110119
  Receipt Date: 20110112
  Transmission Date: 20110831
  Serious: Yes (Life-Threatening, Hospitalization, Other)
  Sender: FDA-Public Use
  Company Number: DE-BRISTOL-MYERS SQUIBB COMPANY-15396260

PATIENT
  Age: 71 Year
  Sex: Female

DRUGS (2)
  1. IRINOTECAN HCL [Suspect]
     Indication: COLORECTAL CANCER
     Dates: start: 20090826
  2. ERBITUX [Suspect]
     Indication: COLORECTAL CANCER
     Dosage: NO OF INF :1
     Route: 042
     Dates: start: 20080201

REACTIONS (2)
  - CARDIAC FAILURE [None]
  - TORSADE DE POINTES [None]
